FAERS Safety Report 6307429-5 (Version None)
Quarter: 2009Q3

REPORT INFORMATION
  Report Type: 
  Country: None (occurrence: None)
  Receive Date: 20090813
  Receipt Date: 20090513
  Transmission Date: 20100115
  Serious: No
  Sender: FDA-Public Use
  Company Number: US-BRISTOL-MYERS SQUIBB COMPANY-14622500

PATIENT
  Age: 54 Year
  Sex: Female

DRUGS (5)
  1. IXEMPRA KIT [Suspect]
     Dosage: 2ND DOSE
  2. DECADRON [Concomitant]
  3. BENADRYL [Concomitant]
  4. TAGAMET [Concomitant]
  5. ALOXI [Concomitant]
     Dosage: 1 HOUR PRIOR TO INFUSION

REACTIONS (3)
  - CHEST DISCOMFORT [None]
  - DYSPNOEA [None]
  - FLUSHING [None]
